FAERS Safety Report 17503160 (Version 1)
Quarter: 2020Q1

REPORT INFORMATION
  Report Type: Spontaneous
  Country: US (occurrence: US)
  Receive Date: 20200224
  Receipt Date: 20200224
  Transmission Date: 20200409
  Serious: Yes (Disabling)
  Sender: FDA-Public Use
  Company Number: None

PATIENT
  Age: 76 Year
  Sex: Male
  Weight: 71.67 kg

DRUGS (4)
  1. FLOXETINE [Concomitant]
     Active Substance: FLUOXETINE HYDROCHLORIDE
  2. CLONAZEPAM. [Concomitant]
     Active Substance: CLONAZEPAM
  3. PROVENGE [Suspect]
     Active Substance: SIPULEUCEL-T
     Indication: NEOPLASM MALIGNANT
     Dosage: ?          QUANTITY:3 DF DOSAGE FORM;?
     Dates: start: 20190506, end: 20190617
  4. TRIAMTERENE-HCTZ [Concomitant]
     Active Substance: HYDROCHLOROTHIAZIDE\TRIAMTERENE

REACTIONS (3)
  - Emotional distress [None]
  - General symptom [None]
  - Pain [None]

NARRATIVE: CASE EVENT DATE: 20190514
